FAERS Safety Report 5496163-X (Version None)
Quarter: 2007Q4

REPORT INFORMATION
  Report Type: 
  Country: None (occurrence: None)
  Receive Date: 20071023
  Receipt Date: 20071023
  Transmission Date: 20080405
  Serious: Yes (Other)
  Sender: FDA-Public Use
  Company Number: None

PATIENT
  Age: 45 Year
  Sex: Male
  Weight: 81.6475 kg

DRUGS (1)
  1. COLGATE TARTAR CONTROL TOOTHPAST COLGATE [Suspect]
     Indication: DENTAL CARE
     Dosage: TOOTHPBUSH SIZE PORTION DAILY PO
     Route: 048
     Dates: start: 20070601, end: 20071007

REACTIONS (1)
  - PHARMACEUTICAL PRODUCT COMPLAINT [None]
